FAERS Safety Report 7773384-4 (Version None)
Quarter: 2011Q3

REPORT INFORMATION
  Report Type: 
  Country: None (occurrence: None)
  Receive Date: 20110922
  Receipt Date: 20110913
  Transmission Date: 20111222
  Serious: Yes (Other)
  Sender: FDA-Public Use
  Company Number: AR-GENENTECH-324532

PATIENT
  Sex: Male

DRUGS (3)
  1. LUCENTIS [Suspect]
     Indication: THROMBOSIS
     Dosage: 1 DF, 1/MONTH
     Route: 031
     Dates: start: 20110601
  2. LUCENTIS [Suspect]
     Dosage: 1 DF, 1/MONTH
     Route: 031
  3. LUCENTIS [Suspect]
     Dosage: 1 DF, 1/MONTH
     Route: 031

REACTIONS (2)
  - VISUAL ACUITY REDUCED [None]
  - DRUG INEFFECTIVE [None]
